FAERS Safety Report 6428812-3 (Version None)
Quarter: 2009Q4

REPORT INFORMATION
  Report Type: 
  Country: None (occurrence: None)
  Receive Date: 20091105
  Receipt Date: 20091027
  Transmission Date: 20100525
  Serious: Yes (Other)
  Sender: FDA-Public Use
  Company Number: CHPA2009US20725

PATIENT
  Age: 71 Year
  Sex: Female

DRUGS (1)
  1. PERDIEM OVERNIGHT RELIEF PILLS (NCH) [Suspect]
     Indication: CONSTIPATION
     Dosage: 15 MG, QD
     Route: 048

REACTIONS (4)
  - COLONIC OBSTRUCTION [None]
  - INCORRECT DOSE ADMINISTERED [None]
  - INTENTIONAL DRUG MISUSE [None]
  - SURGERY [None]
